FAERS Safety Report 5268514-2 (Version None)
Quarter: 2007Q1

REPORT INFORMATION
  Report Type: 
  Country: None (occurrence: None)
  Receive Date: 20070319
  Receipt Date: 20061109
  Transmission Date: 20070707
  Serious: Yes (Death, Hospitalization, Other)
  Sender: FDA-Public Use
  Company Number: US-PFIZER INC-2006111133

PATIENT
  Sex: Male

DRUGS (1)
  1. DETROL LA [Suspect]
     Indication: URINARY TRACT DISORDER
     Dosage: DAILY DOSE:2MG
     Dates: start: 20060615, end: 20060101

REACTIONS (8)
  - ABNORMAL BEHAVIOUR [None]
  - CONFUSIONAL STATE [None]
  - DEATH [None]
  - DYSPNOEA [None]
  - FAECAL INCONTINENCE [None]
  - HYPOACUSIS [None]
  - OEDEMA PERIPHERAL [None]
  - PNEUMONIA [None]
